FAERS Safety Report 4687444-8 (Version None)
Quarter: 2005Q2

REPORT INFORMATION
  Report Type: 
  Country: None (occurrence: None)
  Receive Date: 20050610
  Receipt Date: 20050527
  Transmission Date: 20051028
  Serious: Yes (Hospitalization)
  Sender: FDA-Public Use
  Company Number: JP-JNJFOC-20050504879

PATIENT
  Sex: Male

DRUGS (8)
  1. ITRIZOLE [Suspect]
     Indication: ONYCHOMYCOSIS
     Route: 049
  2. ASPIRIN [Concomitant]
     Route: 049
  3. TRANDOLAPRIL [Concomitant]
     Indication: HYPERTENSION
     Route: 049
  4. CARVEDILOL [Concomitant]
     Indication: HYPERTENSION
     Route: 049
  5. CANDESARTAN CILEXETIL [Concomitant]
     Indication: HYPERTENSION
     Route: 049
  6. BENIDIPINE HYDROCHLORIDE [Concomitant]
     Indication: HYPERTENSION
     Route: 049
  7. ALLOPURINOL [Concomitant]
     Indication: HYPERURICAEMIA
     Route: 049
  8. FUROSEMIDE [Concomitant]
     Indication: CARDIAC FAILURE CHRONIC
     Route: 049

REACTIONS (3)
  - CARDIAC FAILURE [None]
  - PULMONARY CONGESTION [None]
  - RENAL FAILURE [None]
